FAERS Safety Report 6683551-9 (Version None)
Quarter: 2010Q2

REPORT INFORMATION
  Report Type: 
  Country: None (occurrence: None)
  Receive Date: 20100413
  Receipt Date: 20100105
  Transmission Date: 20101027
  Serious: Yes (Other)
  Sender: FDA-Public Use
  Company Number: 2010-0478

PATIENT
  Age: 47 Year
  Sex: Male

DRUGS (1)
  1. APOMORPHINE (APO-GO) (APOMORPHINE HYDROCHLORIDE) (APOMORPHINE HYDROCHL [Suspect]
     Indication: PARKINSON'S DISEASE

REACTIONS (1)
  - PSYCHOTIC DISORDER [None]
